FAERS Safety Report 19859921 (Version 2)
Quarter: 2021Q4

REPORT INFORMATION
  Report Type: Spontaneous
  Country: CN (occurrence: CN)
  Receive Date: 20210921
  Receipt Date: 20211108
  Transmission Date: 20220303
  Serious: Yes (Hospitalization)
  Sender: FDA-Public Use
  Company Number: CN-NOVOPROD-846967

PATIENT
  Age: 12 Year
  Sex: Female
  Weight: 48.7 kg

DRUGS (3)
  1. NORDITROPIN [Suspect]
     Active Substance: SOMATROPIN
     Indication: Short stature
     Dosage: 8.5 IU, QD (BEFORE SLEEPING)
     Route: 058
     Dates: start: 202102, end: 20210717
  2. NORDITROPIN [Suspect]
     Active Substance: SOMATROPIN
     Indication: Precocious puberty
     Dosage: UNK
     Route: 058
     Dates: start: 20210722, end: 20210724
  3. IBUPROFEN [Concomitant]
     Active Substance: IBUPROFEN
     Dosage: 0.4 G, Q8H

REACTIONS (3)
  - Lymphadenitis [Recovered/Resolved]
  - Transaminases increased [Unknown]
  - Rhinitis allergic [Unknown]

NARRATIVE: CASE EVENT DATE: 20210717
